FAERS Safety Report 15292812 (Version 1)
Quarter: 2018Q3

REPORT INFORMATION
  Report Type: Spontaneous
  Country: US (occurrence: US)
  Receive Date: 20180806
  Receipt Date: 20180806
  Transmission Date: 20181010
  Serious: Yes (Life-Threatening, Hospitalization)
  Sender: FDA-Public Use
  Company Number: None

PATIENT
  Age: 49 Year
  Sex: Female
  Weight: 56.7 kg

DRUGS (1)
  1. GADAVIST [Suspect]
     Active Substance: GADOBUTROL
     Indication: MIGRAINE WITHOUT AURA
     Route: 042
     Dates: start: 20180308, end: 20180308

REACTIONS (4)
  - Speech disorder [None]
  - Throat tightness [None]
  - Drug ineffective [None]
  - Cough [None]

NARRATIVE: CASE EVENT DATE: 20180308
